FAERS Safety Report 8871473 (Version 1)
Quarter: 2012Q4

REPORT INFORMATION
  Report Type: 
  Country: US (occurrence: US)
  Receive Date: 20121023
  Receipt Date: 20121023
  Transmission Date: 20130627
  Serious: No
  Sender: FDA-Public Use
  Company Number: US-ASTELLAS-2012US007758

PATIENT
  Sex: Male
  Weight: 86 kg

DRUGS (6)
  1. PROGRAF [Suspect]
     Indication: HEART TRANSPLANT
     Dosage: 3 mg in am, 2 mg in pm
     Route: 048
     Dates: start: 20050105
  2. CELLCEPT                           /01275102/ [Concomitant]
     Indication: HEART TRANSPLANT
     Dosage: 1000 mg am, 500 mg pm
     Route: 048
     Dates: start: 20050105
  3. PREDNISONE [Concomitant]
     Indication: HEART TRANSPLANT
     Dosage: 5 mg, UID/QD
     Route: 048
     Dates: start: 20050105
  4. LISINOPRIL [Concomitant]
     Indication: CARDIAC DISORDER
     Dosage: UNK
     Route: 048
     Dates: start: 201203
  5. LEXAPRO [Concomitant]
     Indication: DEPRESSION
     Dosage: 20 mg, UID/QD
     Route: 048
     Dates: start: 2004
  6. AMLODIPINE [Concomitant]
     Indication: BLOOD PRESSURE
     Dosage: 10 mg, UID/QD
     Route: 048
     Dates: start: 2007

REACTIONS (1)
  - Infection [Recovered/Resolved]
